FAERS Safety Report 4822714-1 (Version None)
Quarter: 2005Q4

REPORT INFORMATION
  Report Type: 
  Country: None (occurrence: None)
  Receive Date: 20051104
  Receipt Date: 20051021
  Transmission Date: 20060501
  Serious: Yes (Death, Hospitalization)
  Sender: FDA-Public Use
  Company Number: 2005EU001949

PATIENT
  Age: 58 Year
  Sex: Male

DRUGS (11)
  1. PROGRAF [Suspect]
     Indication: RENAL TRANSPLANT
     Dosage: 0.50 MG, UID/QD,
     Dates: start: 20040301, end: 20050510
  2. NEORAL [Suspect]
     Indication: RENAL TRANSPLANT
     Dosage: /D,
     Dates: end: 20050301
  3. CELLCEPT [Suspect]
     Indication: RENAL TRANSPLANT
     Dosage: /D,
     Dates: start: 20040301, end: 20040701
  4. ARANESP [Suspect]
     Indication: RENAL FAILURE CHRONIC
     Dosage: 30.00 DF, /D,
     Dates: start: 20050201, end: 20050510
  5. TARDYFERON /SCH/ (IRON, FERROUS SULFATE) [Concomitant]
  6. FORTUM (CEFTAZIDIME PENTAHYDRATE) [Concomitant]
  7. FUROSEMIDE [Concomitant]
  8. EPREX [Concomitant]
  9. ZYLORIC ^GLAXO WELLCOME^ [Concomitant]
  10. AMIKIN [Concomitant]
  11. VANCOMYCIN [Concomitant]

REACTIONS (17)
  - DEPRESSED LEVEL OF CONSCIOUSNESS [None]
  - DIARRHOEA [None]
  - DRUG TOXICITY [None]
  - GASTROINTESTINAL HAEMORRHAGE [None]
  - HEPATITIS CHOLESTATIC [None]
  - HISTIOCYTOSIS HAEMATOPHAGIC [None]
  - HYPERTRIGLYCERIDAEMIA [None]
  - HYPOGLOBULINAEMIA [None]
  - INFECTION [None]
  - KIDNEY TRANSPLANT REJECTION [None]
  - LYMPHOMA [None]
  - METABOLIC ACIDOSIS [None]
  - MICROCYTIC ANAEMIA [None]
  - MULTI-ORGAN FAILURE [None]
  - RENAL IMPAIRMENT [None]
  - SIGMOIDITIS [None]
  - THERAPEUTIC AGENT TOXICITY [None]
